FAERS Safety Report 5770870-3 (Version None)
Quarter: 2008Q2

REPORT INFORMATION
  Report Type: 
  Country: None (occurrence: None)
  Receive Date: 20080613
  Receipt Date: 20080518
  Transmission Date: 20081010
  Serious: No
  Sender: FDA-Public Use
  Company Number: US-ABBOTT-08P-163-0452431-00

PATIENT
  Sex: Male
  Weight: 69.462 kg

DRUGS (3)
  1. HUMIRA [Suspect]
     Indication: RHEUMATOID ARTHRITIS
     Route: 058
     Dates: start: 20080101
  2. ISONIAZID [Concomitant]
     Indication: TUBERCULOSIS
  3. PYRIDOXINE HYDROCHLORIDE [Concomitant]
     Indication: TUBERCULOSIS

REACTIONS (3)
  - HEADACHE [None]
  - NASOPHARYNGITIS [None]
  - RHINORRHOEA [None]
